FAERS Safety Report 16766794 (Version 11)
Quarter: 2020Q4

REPORT INFORMATION
  Report Type: Report from Study
  Country: AU (occurrence: AU)
  Receive Date: 20190903
  Receipt Date: 20201123
  Transmission Date: 20210113
  Serious: Yes (Hospitalization)
  Sender: FDA-Public Use
  Company Number: AU-EISAI MEDICAL RESEARCH-EC-2019-061146

PATIENT
  Age: 58 Year
  Sex: Female
  Weight: 75.9 kg

DRUGS (13)
  1. MODURETIC 5-50 [Concomitant]
     Active Substance: AMILORIDE HYDROCHLORIDE\HYDROCHLOROTHIAZIDE
     Dates: start: 20190808
  2. SALPRAZ [Concomitant]
     Dates: start: 201601
  3. AMLODIPINE [Concomitant]
     Active Substance: AMLODIPINE BESYLATE
     Dates: start: 20190801, end: 20190807
  4. PEMBROLIZUMAB. [Suspect]
     Active Substance: PEMBROLIZUMAB
     Indication: OVARIAN CANCER
     Route: 041
     Dates: start: 20190619, end: 20190711
  5. PEMBROLIZUMAB. [Suspect]
     Active Substance: PEMBROLIZUMAB
     Route: 041
     Dates: start: 20190731, end: 20190731
  6. PANADOL [Concomitant]
     Active Substance: ACETAMINOPHEN
     Dates: start: 201905
  7. ASMOL [Concomitant]
     Dates: start: 201905
  8. XARELTO [Concomitant]
     Active Substance: RIVAROXABAN
     Dates: start: 20190629, end: 20190905
  9. ATIVAN [Concomitant]
     Active Substance: LORAZEPAM
     Dates: start: 20190701
  10. LENVATINIB [Suspect]
     Active Substance: LENVATINIB
     Route: 048
     Dates: start: 20190820, end: 20190820
  11. LENVATINIB [Suspect]
     Active Substance: LENVATINIB
     Indication: OVARIAN CANCER
     Dosage: STARTING DOSE AT 20 MG FLUCTUATED DOSAGE
     Route: 048
     Dates: start: 20190619, end: 20190819
  12. MAGNESIUM [Concomitant]
     Active Substance: MAGNESIUM
     Dates: start: 201905, end: 20190821
  13. GLUCOSAMINE [Concomitant]
     Active Substance: GLUCOSAMINE
     Dates: start: 201905

REACTIONS (2)
  - Headache [Recovered/Resolved]
  - Pyrexia [Recovered/Resolved]

NARRATIVE: CASE EVENT DATE: 20190821
